FAERS Safety Report 10757873 (Version 1)
Quarter: 2015Q1

REPORT INFORMATION
  Report Type: Spontaneous
  Country: US (occurrence: None)
  Receive Date: 20150202
  Receipt Date: 20150202
  Transmission Date: 20150721
  Serious: No
  Sender: FDA-Public Use
  Company Number: None

PATIENT
  Age: 69 Year
  Sex: Female
  Weight: 107.05 kg

DRUGS (8)
  1. OMEPRAZOLE. [Concomitant]
     Active Substance: OMEPRAZOLE
  2. FLORIMIDE [Concomitant]
  3. DIOVAN [Suspect]
     Active Substance: VALSARTAN
     Indication: BLOOD PRESSURE
     Dosage: 1 PILL  1 TABLET EVERY DAY
     Route: 048
     Dates: start: 20141103, end: 20141229
  4. OSCAL WITH CALCIUM [Concomitant]
  5. VITAMIN D [Concomitant]
     Active Substance: CHOLECALCIFEROL
  6. ASPIRIN. [Concomitant]
     Active Substance: ASPIRIN
  7. WARFARIN [Concomitant]
     Active Substance: WARFARIN
  8. AMIODARONE [Concomitant]
     Active Substance: AMIODARONE

REACTIONS (8)
  - Drug dispensing error [None]
  - Product odour abnormal [None]
  - Aphonia [None]
  - Blood urine present [None]
  - Pulmonary oedema post fume inhalation [None]
  - Blood pressure increased [None]
  - Palpitations [None]
  - Product quality issue [None]
